FAERS Safety Report 23366080 (Version 2)
Quarter: 2024Q1

REPORT INFORMATION
  Report Type: Spontaneous
  Country: US (occurrence: None)
  Receive Date: 20240104
  Receipt Date: 20240123
  Transmission Date: 20240410
  Serious: No
  Sender: FDA-Public Use
  Company Number: 2023A288744

PATIENT

DRUGS (1)
  1. SYMBICORT [Suspect]
     Active Substance: BUDESONIDE\FORMOTEROL FUMARATE DIHYDRATE
     Dosage: 160 UG, TWO TIMES A DAY
     Route: 055

REACTIONS (11)
  - Infection [Unknown]
  - Asthma [Unknown]
  - Oxygen saturation decreased [Unknown]
  - Sinus congestion [Unknown]
  - Product taste abnormal [Unknown]
  - Illness [Unknown]
  - Gastrooesophageal reflux disease [Unknown]
  - Device malfunction [Unknown]
  - Retching [Unknown]
  - Feeling abnormal [Unknown]
  - Hypophagia [Unknown]
